FAERS Safety Report 5302022-5 (Version None)
Quarter: 2007Q2

REPORT INFORMATION
  Report Type: 
  Country: None (occurrence: None)
  Receive Date: 20070416
  Receipt Date: 20070416
  Transmission Date: 20071010
  Serious: No
  Sender: FDA-Public Use
  Company Number: None

PATIENT
  Sex: Female
  Weight: 40.8237 kg

DRUGS (2)
  1. AMIODARONE HCL [Suspect]
     Indication: ATRIAL FIBRILLATION
     Dosage: 1/2 TAB   ONCE/DAY   PO
     Route: 048
     Dates: start: 20060801, end: 20070228
  2. ETHAMBUTOL HYDROCHLORIDE [Suspect]
     Indication: LUNG INFECTION
     Dosage: 1 TAB   ONCE/DAY   PO
     Route: 048
     Dates: start: 20060801, end: 20070228

REACTIONS (1)
  - BLINDNESS [None]
